FAERS Safety Report 8551191-2 (Version None)
Quarter: 2012Q3

REPORT INFORMATION
  Report Type: 
  Country: None (occurrence: None)
  Receive Date: 20120730
  Receipt Date: 20120720
  Transmission Date: 20120928
  Serious: Yes (Hospitalization)
  Sender: FDA-Public Use
  Company Number: US-JNJFOC-20120711704

PATIENT
  Sex: Male
  Weight: 28 kg

DRUGS (9)
  1. LANSOPRAZOLE [Concomitant]
  2. INFLIXIMAB, RECOMBINANT [Suspect]
     Indication: INFLAMMATORY BOWEL DISEASE
     Route: 042
     Dates: start: 20101227
  3. SINGULAIR [Concomitant]
  4. ALBUTEROL [Concomitant]
  5. ADVAIR DISKUS 100/50 [Concomitant]
  6. CETIRIZINE HCL [Concomitant]
  7. FLOVENT [Concomitant]
  8. PROBIOTICS [Concomitant]
  9. CHOLECALCIFEROL [Concomitant]

REACTIONS (1)
  - DIARRHOEA INFECTIOUS [None]
